FAERS Safety Report 18216853 (Version 3)
Quarter: 2020Q4

REPORT INFORMATION
  Report Type: Spontaneous
  Country: US (occurrence: US)
  Receive Date: 20200901
  Receipt Date: 20201030
  Transmission Date: 20210113
  Serious: Yes (Death, Life-Threatening, Hospitalization)
  Sender: FDA-Public Use
  Company Number: US-ULTRAGENYX PHARMACEUTICAL INC.-US-UGNX-20-00156

PATIENT
  Age: 6 Month
  Sex: Female

DRUGS (10)
  1. CARNITINE [Concomitant]
     Active Substance: CARNITINE
     Indication: PRODUCT USED FOR UNKNOWN INDICATION
  2. FAMOTIDINE. [Concomitant]
     Active Substance: FAMOTIDINE
     Indication: PRODUCT USED FOR UNKNOWN INDICATION
  3. DOJOLVI [Suspect]
     Active Substance: TRIHEPTANOIN
     Indication: TRIFUNCTIONAL PROTEIN DEFICIENCY
     Dates: start: 20200804, end: 20200820
  4. METHADONE [Concomitant]
     Active Substance: METHADONE HYDROCHLORIDE
     Indication: PRODUCT USED FOR UNKNOWN INDICATION
     Dosage: WEANING IT
  5. ALBUTEROL NEBULIZER [Concomitant]
     Active Substance: ALBUTEROL
     Indication: PRODUCT USED FOR UNKNOWN INDICATION
  6. MCT OIL [Concomitant]
     Indication: VERY LONG-CHAIN ACYL-COENZYME A DEHYDROGENASE DEFICIENCY
  7. DOJOLVI [Suspect]
     Active Substance: TRIHEPTANOIN
     Dates: end: 20200820
  8. LORAZEPAM. [Concomitant]
     Active Substance: LORAZEPAM
     Indication: PRODUCT USED FOR UNKNOWN INDICATION
  9. TPN [Concomitant]
     Active Substance: AMINO ACIDS\DEXTROSE\ELECTROLYTES NOS\SOYBEAN OIL
  10. BOTOX [Concomitant]
     Active Substance: ONABOTULINUMTOXINA
     Indication: DECREASED BRONCHIAL SECRETION

REACTIONS (3)
  - Respiratory failure [Fatal]
  - Gastrointestinal necrosis [Unknown]
  - Cardiac arrest [Not Recovered/Not Resolved]

NARRATIVE: CASE EVENT DATE: 20200819
